FAERS Safety Report 6846051 (Version 6)
Quarter: 2021Q3

REPORT INFORMATION
  Report Type: Spontaneous
  Country: FR (occurrence: FR)
  Receive Date: 20081212
  Receipt Date: 20210909
  Transmission Date: 20211014
  Serious: Yes (Congenital Anomaly, Other)
  Sender: FDA-Public Use
  Company Number: FR-JNJFOC-20081201121

PATIENT
  Sex: Female
  Weight: 3.48 kg

DRUGS (5)
  1. FOLIC ACID. [Concomitant]
     Active Substance: FOLIC ACID
     Indication: PRODUCT USED FOR UNKNOWN INDICATION
     Route: 064
  2. LAMICTAL [Suspect]
     Active Substance: LAMOTRIGINE
     Indication: EPILEPSY
     Route: 064
  3. EPITOMAX [Suspect]
     Active Substance: TOPIRAMATE
     Indication: EPILEPSY
     Route: 064
  4. TRILEPTAL [Suspect]
     Active Substance: OXCARBAZEPINE
     Indication: EPILEPSY
     Route: 064
  5. CLONAZEPAM. [Suspect]
     Active Substance: CLONAZEPAM
     Indication: EPILEPSY
     Route: 064

REACTIONS (7)
  - Limb malformation [Unknown]
  - Foetal exposure during pregnancy [Unknown]
  - Microtia [Not Recovered/Not Resolved]
  - Retrognathia [Not Recovered/Not Resolved]
  - Low set ears [Not Recovered/Not Resolved]
  - Dysmorphism [Unknown]
  - Ear deformity acquired [Unknown]

NARRATIVE: CASE EVENT DATE: 2008
